FAERS Safety Report 9788836 (Version 3)
Quarter: 2014Q3

REPORT INFORMATION
  Report Type: Spontaneous
  Country: ES (occurrence: ES)
  Receive Date: 20131230
  Receipt Date: 20140716
  Transmission Date: 20150326
  Serious: Yes (Other)
  Sender: FDA-Public Use
  Company Number: PHHY2013ES153348

PATIENT
  Age: 62 Year
  Sex: Female

DRUGS (2)
  1. PARACETAMOL [Suspect]
     Active Substance: ACETAMINOPHEN
     Dosage: 1 G, TID
  2. PARACETAMOL [Suspect]
     Active Substance: ACETAMINOPHEN
     Dosage: 100 MG, TID

REACTIONS (5)
  - Rash erythematous [Unknown]
  - Oral papule [Unknown]
  - Drug eruption [Unknown]
  - Rash maculo-papular [Unknown]
  - Rash pruritic [Unknown]
